FAERS Safety Report 14034193 (Version 1)
Quarter: 2017Q4

REPORT INFORMATION
  Report Type: Spontaneous
  Country: US (occurrence: US)
  Receive Date: 20171003
  Receipt Date: 20171003
  Transmission Date: 20180321
  Serious: No
  Sender: FDA-Public Use
  Company Number: US-TEVA-708628USA

PATIENT
  Sex: Male

DRUGS (1)
  1. CLONAZEPAM. [Suspect]
     Active Substance: CLONAZEPAM
     Indication: ANXIETY
     Dosage: 3 MILLIGRAM DAILY;
     Route: 065
     Dates: start: 2011

REACTIONS (4)
  - Tachyphrenia [Unknown]
  - Insomnia [Unknown]
  - Drug ineffective [Unknown]
  - Tinnitus [Unknown]
